FAERS Safety Report 4560798-9 (Version None)
Quarter: 2005Q1

REPORT INFORMATION
  Report Type: 
  Country: None (occurrence: None)
  Receive Date: 20050124
  Receipt Date: 20050117
  Transmission Date: 20050727
  Serious: Yes (Life-Threatening, Hospitalization)
  Sender: FDA-Public Use
  Company Number: 2005-124278-NL

PATIENT
  Age: 77 Year
  Sex: Female

DRUGS (12)
  1. DEXAMETHASONE [Suspect]
     Dosage: 20 MG QD
     Route: 048
  2. CARBIMAZOLE [Suspect]
     Indication: HYPERTHYROIDISM
     Dosage: 20 MG BID
     Route: 048
     Dates: start: 20041130, end: 20041213
  3. FRUSEMIDE [Concomitant]
  4. METOPROLOL TARTRATE [Concomitant]
  5. ACETYLSALICYLIC ACID SRT [Concomitant]
  6. ............ [Concomitant]
  7. DIGOXIN [Concomitant]
  8. LANSOPRAZOLE [Concomitant]
  9. CARVEDILOL [Concomitant]
  10. ISOSORBIDE [Concomitant]
  11. WARFARIN SODIUM [Concomitant]
  12. BUMETANIDE [Concomitant]

REACTIONS (1)
  - NEUTROPENIA [None]
